FAERS Safety Report 5990622-9 (Version None)
Quarter: 2008Q4

REPORT INFORMATION
  Report Type: 
  Country: None (occurrence: None)
  Receive Date: 20081211
  Receipt Date: 20081208
  Transmission Date: 20090506
  Serious: Yes (Other)
  Sender: FDA-Public Use
  Company Number: B0451248A

PATIENT
  Age: 27 Year
  Sex: Female

DRUGS (8)
  1. PAXIL [Suspect]
     Indication: DEPRESSION
     Route: 048
     Dates: start: 20040802, end: 20060517
  2. PAXIL [Suspect]
     Dosage: 10MG PER DAY
     Route: 048
     Dates: start: 20060518, end: 20060811
  3. PAXIL [Suspect]
     Dosage: 5MG PER DAY
     Route: 048
     Dates: start: 20060812, end: 20061201
  4. DOGMATYL [Concomitant]
     Dosage: 100MG PER DAY
     Route: 048
     Dates: start: 20060220, end: 20060713
  5. MEILAX [Concomitant]
     Indication: ANXIETY
     Dosage: 2MG PER DAY
     Route: 048
     Dates: start: 20030714, end: 20060517
  6. MEILAX [Concomitant]
     Dosage: 1MG PER DAY
     Route: 048
     Dates: start: 20060518, end: 20060630
  7. EVAMYL [Concomitant]
     Indication: INSOMNIA
     Dosage: 2MG PER DAY
     Route: 048
     Dates: start: 20050304, end: 20060517
  8. EVAMYL [Concomitant]
     Dosage: 1MG PER DAY
     Route: 048
     Dates: start: 20060518, end: 20060616

REACTIONS (3)
  - ABORTION THREATENED [None]
  - DELIVERY [None]
  - HAEMORRHAGE [None]
